FAERS Safety Report 16644913 (Version 3)
Quarter: 2020Q1

REPORT INFORMATION
  Report Type: Spontaneous
  Country: US (occurrence: US)
  Receive Date: 20190729
  Receipt Date: 20200124
  Transmission Date: 20200409
  Serious: No
  Sender: FDA-Public Use
  Company Number: US-SA-2019SA202516

PATIENT
  Age: 40 Year
  Sex: Female

DRUGS (6)
  1. TRIAMCINOLON [TRIAMCINOLONE] [Concomitant]
  2. DUPIXENT [Suspect]
     Active Substance: DUPILUMAB
     Indication: DERMATITIS
     Dosage: 300 MG, QOW
     Route: 058
     Dates: start: 20180105
  3. DESONIDE. [Concomitant]
     Active Substance: DESONIDE
  4. DUPIXENT [Suspect]
     Active Substance: DUPILUMAB
     Dosage: 300 MG, QOW
     Route: 058
  5. HYDROXYZINE HCL [Concomitant]
     Active Substance: HYDROXYZINE HYDROCHLORIDE
  6. MOMETASONE [Concomitant]
     Active Substance: MOMETASONE

REACTIONS (3)
  - Dermatitis [Unknown]
  - Oropharyngeal pain [Not Recovered/Not Resolved]
  - Product dose omission [Unknown]
